FAERS Safety Report 9406390 (Version 1)
Quarter: 2013Q3

REPORT INFORMATION
  Report Type: Spontaneous
  Country: US (occurrence: US)
  Receive Date: 20130718
  Receipt Date: 20130718
  Transmission Date: 20140515
  Serious: Yes (Other)
  Sender: FDA-Public Use
  Company Number: US-AMGEN-USASP2013049048

PATIENT
  Age: 59 Year
  Sex: Female

DRUGS (10)
  1. ENBREL [Suspect]
     Indication: PRODUCT USED FOR UNKNOWN INDICATION
     Dosage: 50 MG, QWK
     Route: 058
  2. HUMALOG [Concomitant]
     Dosage: 100/ML, UNK
  3. RESTASIS [Concomitant]
     Dosage: 0.05 %, UNK
  4. PATANOL [Concomitant]
     Dosage: 0.1 %, OP
  5. PRAVASTATIN [Concomitant]
     Dosage: 10 MG, UNK
  6. CLOBETASOL [Concomitant]
     Dosage: 0.05 %, UNK
  7. VITAMIN E                          /00110501/ [Concomitant]
     Dosage: 1000 IU, UNK
  8. LEVOTHYROXIN [Concomitant]
     Dosage: 100 MUG, UNK
  9. B COMPLEX                          /00212701/ [Concomitant]
     Dosage: UNK
  10. VITAMIN D                          /00107901/ [Concomitant]
     Dosage: 1000 IU, UNK

REACTIONS (1)
  - Breast cancer [Unknown]
